FAERS Safety Report 4394046-X (Version None)
Quarter: 2004Q3

REPORT INFORMATION
  Report Type: 
  Country: None (occurrence: None)
  Receive Date: 20040708
  Receipt Date: 20040629
  Transmission Date: 20050211
  Serious: Yes (Other)
  Sender: FDA-Public Use
  Company Number: 001907

PATIENT
  Sex: Female

DRUGS (1)
  1. TREXALL (METHOTREXATE) TABLET, 10MG [Suspect]
     Indication: RHEUMATOID ARTHRITIS
     Dosage: 10.00 MG, SINGLE, ORAL
     Route: 048

REACTIONS (3)
  - MIGRAINE [None]
  - REFUSAL OF TREATMENT BY PATIENT [None]
  - STRESS SYMPTOMS [None]
